FAERS Safety Report 20805036 (Version 4)
Quarter: 2023Q2

REPORT INFORMATION
  Report Type: Spontaneous
  Country: US (occurrence: US)
  Receive Date: 20220509
  Receipt Date: 20230622
  Transmission Date: 20230721
  Serious: Yes (Other)
  Sender: FDA-Public Use
  Company Number: US-PFIZER INC-202200157934

PATIENT
  Age: 77 Year
  Sex: Female

DRUGS (2)
  1. XELJANZ XR [Suspect]
     Active Substance: TOFACITINIB CITRATE
     Indication: Rheumatoid arthritis
     Dosage: 11 MG, DAILY
     Route: 048
  2. XELJANZ XR [Suspect]
     Active Substance: TOFACITINIB CITRATE
     Dosage: 11 MG
     Dates: start: 20211109

REACTIONS (10)
  - Rheumatoid arthritis [Unknown]
  - Sciatica [Recovering/Resolving]
  - Paraesthesia [Unknown]
  - Stenosis [Unknown]
  - Multiple drug therapy [Unknown]
  - Finger deformity [Unknown]
  - Grip strength decreased [Unknown]
  - Sensitivity to weather change [Unknown]
  - Product administration interrupted [Unknown]
  - Product dose omission issue [Unknown]
